FAERS Safety Report 7611682-5 (Version None)
Quarter: 2011Q3

REPORT INFORMATION
  Report Type: 
  Country: None (occurrence: None)
  Receive Date: 20110715
  Receipt Date: 20110708
  Transmission Date: 20111222
  Serious: Yes (Death, Hospitalization, Other)
  Sender: FDA-Public Use
  Company Number: JP-MERCK-1101USA00845

PATIENT
  Age: 65 Year
  Sex: Female

DRUGS (17)
  1. PREDNISOLONE [Concomitant]
     Indication: ASTHMA
     Route: 048
     Dates: start: 20101230, end: 20110102
  2. GOODMIN [Concomitant]
     Indication: INSOMNIA
     Route: 048
     Dates: start: 20101230, end: 20110102
  3. CRESTOR [Concomitant]
     Route: 048
  4. VERAPAMIL HCL [Concomitant]
     Indication: CARDIAC FAILURE
     Route: 048
     Dates: start: 20101230, end: 20110102
  5. SAXIZON [Concomitant]
     Indication: ASTHMA
     Route: 042
     Dates: start: 20101224, end: 20110103
  6. SINGULAIR [Concomitant]
     Route: 048
  7. ROCEPHIN [Concomitant]
     Indication: INFLAMMATION
     Route: 042
     Dates: start: 20101224, end: 20101230
  8. SPIRIVA [Concomitant]
     Route: 055
  9. CALBLOCK [Concomitant]
     Route: 048
  10. JANUVIA [Suspect]
     Indication: TYPE 2 DIABETES MELLITUS
     Dosage: DAILY DOSEAGE UNKNOWN
     Route: 048
     Dates: start: 20101228, end: 20110102
  11. DIGOXIN [Concomitant]
     Indication: TACHYCARDIA
     Route: 048
     Dates: start: 20101228, end: 20110102
  12. LASIX [Concomitant]
     Indication: CARDIAC FAILURE
     Route: 048
     Dates: start: 20101228, end: 20110102
  13. FOSAMAX [Concomitant]
     Dosage: DAILY DOSE UNKNOWN
     Route: 048
  14. SOLULACT TMR [Concomitant]
     Indication: FLUID REPLACEMENT
     Dosage: 500ML X1-TIWCE A DAY
     Route: 042
     Dates: start: 20101224, end: 20110105
  15. ADOAIR [Concomitant]
     Route: 055
  16. HYZAAR [Concomitant]
     Dosage: DAILY DOSE UNKNOWN
     Route: 048
  17. MEPTIN AIR [Concomitant]
     Route: 055

REACTIONS (4)
  - CARDIO-RESPIRATORY ARREST [None]
  - INFECTIOUS PERITONITIS [None]
  - PANCREATITIS ACUTE [None]
  - HEPATIC STEATOSIS [None]
